FAERS Safety Report 7608944-4 (Version None)
Quarter: 2011Q3

REPORT INFORMATION
  Report Type: 
  Country: None (occurrence: None)
  Receive Date: 20110714
  Receipt Date: 20110708
  Transmission Date: 20111222
  Serious: Yes (Hospitalization)
  Sender: FDA-Public Use
  Company Number: CA-GLAXOSMITHKLINE-A0936393A

PATIENT
  Age: 65 Year
  Sex: Female
  Weight: 65.9 kg

DRUGS (5)
  1. ALTACE HCT [Concomitant]
     Route: 048
  2. METFORMIN HCL [Concomitant]
     Route: 048
  3. AVANDIA [Suspect]
     Indication: PRODUCT USED FOR UNKNOWN INDICATION
     Dosage: 1TAB PER DAY
     Route: 065
  4. SYNTHROID [Concomitant]
     Route: 048
  5. ATORVASTATIN [Concomitant]
     Route: 048

REACTIONS (4)
  - CONFUSIONAL STATE [None]
  - DYSPNOEA [None]
  - CARDIAC FAILURE [None]
  - ARTHRITIS [None]
